FAERS Safety Report 4816215-4 (Version None)
Quarter: 2005Q4

REPORT INFORMATION
  Report Type: 
  Country: None (occurrence: None)
  Receive Date: 20051026
  Receipt Date: 20051013
  Transmission Date: 20060501
  Serious: Yes (Death, Hospitalization)
  Sender: FDA-Public Use
  Company Number: HQWYE037814OCT05

PATIENT
  Age: 54 Year
  Sex: Male

DRUGS (1)
  1. RAPAMUNE [Suspect]
     Indication: PROPHYLAXIS AGAINST TRANSPLANT REJECTION
     Dosage: 2 MG 1X PER 1 DAY
     Route: 048
     Dates: start: 20040101, end: 20050901

REACTIONS (5)
  - CANDIDIASIS [None]
  - ENTEROCOCCAL INFECTION [None]
  - PNEUMONIA [None]
  - PSEUDOMONAS INFECTION [None]
  - PULMONARY TOXICITY [None]
